FAERS Safety Report 9658819 (Version 2)
Quarter: 2013Q4

REPORT INFORMATION
  Report Type: Spontaneous
  Country: US (occurrence: US)
  Receive Date: 20131030
  Receipt Date: 20131030
  Transmission Date: 20140711
  Serious: No
  Sender: FDA-Public Use
  Company Number: US-PURDUE-USA-2011-0071485

PATIENT
  Age: 76 Year
  Sex: Female

DRUGS (3)
  1. OXYCONTIN (NDA 22-272) [Suspect]
     Indication: PAIN
     Dosage: 20 MG, TID
     Route: 048
     Dates: start: 201009
  2. OXYCONTIN (NDA 22-272) [Suspect]
     Indication: BREAKTHROUGH PAIN
     Dosage: 40 MG, TID
     Route: 048
  3. OXYCONTIN (NDA 22-272) [Suspect]
     Dosage: 10 MG, UNK

REACTIONS (7)
  - Increased bronchial secretion [Not Recovered/Not Resolved]
  - Wheezing [Not Recovered/Not Resolved]
  - Dyspnoea [Not Recovered/Not Resolved]
  - Inadequate analgesia [Unknown]
  - Drug hypersensitivity [Unknown]
  - Product size issue [Unknown]
  - Drug intolerance [Unknown]
